FAERS Safety Report 8361492-9 (Version None)
Quarter: 2012Q2

REPORT INFORMATION
  Report Type: 
  Country: None (occurrence: None)
  Receive Date: 20120514
  Receipt Date: 20120426
  Transmission Date: 20120825
  Serious: Yes (Hospitalization, Other)
  Sender: FDA-Public Use
  Company Number: 2012RR-56069

PATIENT
  Age: 65 Year
  Sex: Male

DRUGS (1)
  1. METFORMIN HCL [Suspect]
     Indication: DIABETES MELLITUS

REACTIONS (11)
  - LACTIC ACIDOSIS [None]
  - DISORIENTATION [None]
  - DIARRHOEA [None]
  - EATING DISORDER [None]
  - TACHYPNOEA [None]
  - TOXICITY TO VARIOUS AGENTS [None]
  - MYOCARDIAL DEPRESSION [None]
  - INFLUENZA [None]
  - HYPOCAPNIA [None]
  - DIALYSIS [None]
  - RENAL FAILURE ACUTE [None]
